FAERS Safety Report 6172223-5 (Version None)
Quarter: 2009Q2

REPORT INFORMATION
  Report Type: 
  Country: None (occurrence: None)
  Receive Date: 20090429
  Receipt Date: 20090130
  Transmission Date: 20091009
  Serious: No
  Sender: FDA-Public Use
  Company Number: A0765904A

PATIENT
  Age: 2 Year

DRUGS (3)
  1. ZOFRAN [Suspect]
     Indication: HYPEREMESIS GRAVIDARUM
     Dosage: 8MG THREE TIMES PER DAY
     Dates: start: 20050101
  2. ZOFRAN [Suspect]
  3. UNKNOWN [Concomitant]

REACTIONS (4)
  - DENTAL CARIES [None]
  - DRUG EXPOSURE DURING PREGNANCY [None]
  - SPEECH DISORDER [None]
  - TOOTH EROSION [None]
